FAERS Safety Report 4530361-4 (Version None)
Quarter: 2004Q4

REPORT INFORMATION
  Report Type: 
  Country: None (occurrence: None)
  Receive Date: 20041215
  Receipt Date: 20041202
  Transmission Date: 20050328
  Serious: Yes (Hospitalization)
  Sender: FDA-Public Use
  Company Number: 2004-FF-00702FF

PATIENT
  Age: 1 Day
  Sex: Female
  Weight: 0.6 kg

DRUGS (5)
  1. CLONIDINE [Suspect]
     Dosage: 3 MG  (MG), IU
     Dates: start: 20041115, end: 20041116
  2. LOXEN (NICARDIPINE HYDROCHLORIDE) [Concomitant]
  3. EUPRESSYL (URAPIDIL) [Concomitant]
  4. TRANDATE [Concomitant]
  5. CELESTONE [Concomitant]

REACTIONS (4)
  - CAESAREAN SECTION [None]
  - DRUG EXPOSURE DURING PREGNANCY [None]
  - HYPERTENSION NEONATAL [None]
  - SMALL FOR DATES BABY [None]
